FAERS Safety Report 24462355 (Version 1)
Quarter: 2024Q4

REPORT INFORMATION
  Report Type: Spontaneous
  Country: MY (occurrence: MY)
  Receive Date: 20241018
  Receipt Date: 20241018
  Transmission Date: 20250115
  Serious: No
  Sender: ROCHE
  Company Number: MY-ROCHE-3580048

PATIENT
  Sex: Female

DRUGS (15)
  1. RITUXIMAB [Suspect]
     Active Substance: RITUXIMAB
     Indication: High-grade B-cell lymphoma
     Route: 065
     Dates: start: 20200312, end: 20200609
  2. RITUXIMAB [Suspect]
     Active Substance: RITUXIMAB
     Route: 065
     Dates: start: 20200630, end: 20200726
  3. RITUXIMAB [Suspect]
     Active Substance: RITUXIMAB
     Route: 065
     Dates: start: 20201105, end: 20210305
  4. DOXORUBICIN [Suspect]
     Active Substance: DOXORUBICIN
     Indication: High-grade B-cell lymphoma
     Route: 065
     Dates: start: 20200312, end: 20200609
  5. CYCLOPHOSPHAMIDE [Suspect]
     Active Substance: CYCLOPHOSPHAMIDE
     Indication: High-grade B-cell lymphoma
     Route: 065
     Dates: start: 20200312, end: 20200609
  6. VINCRISTINE [Suspect]
     Active Substance: VINCRISTINE
     Indication: High-grade B-cell lymphoma
     Route: 065
     Dates: start: 20200312, end: 20200609
  7. PREDNISONE [Suspect]
     Active Substance: PREDNISONE
     Indication: High-grade B-cell lymphoma
     Route: 065
     Dates: start: 20200312, end: 20200609
  8. IFOSFAMIDE [Suspect]
     Active Substance: IFOSFAMIDE
     Indication: High-grade B-cell lymphoma
     Route: 065
     Dates: start: 20200630, end: 20200726
  9. CARBOPLATIN [Suspect]
     Active Substance: CARBOPLATIN
     Indication: High-grade B-cell lymphoma
     Route: 065
     Dates: start: 20200630, end: 20200726
  10. ETOPOSIDE [Suspect]
     Active Substance: ETOPOSIDE
     Indication: High-grade B-cell lymphoma
     Route: 065
     Dates: start: 20200630, end: 20200726
  11. GEMCITABINE [Suspect]
     Active Substance: GEMCITABINE
     Indication: High-grade B-cell lymphoma
     Route: 065
     Dates: start: 20201105, end: 20210305
  12. DEXAMETHASONE [Suspect]
     Active Substance: DEXAMETHASONE
     Indication: High-grade B-cell lymphoma
     Route: 065
     Dates: start: 20201105, end: 20210305
  13. CISPLATIN [Suspect]
     Active Substance: CISPLATIN
     Indication: High-grade B-cell lymphoma
     Route: 065
     Dates: start: 20201105, end: 20210305
  14. POLATUZUMAB VEDOTIN [Suspect]
     Active Substance: POLATUZUMAB VEDOTIN
     Indication: High-grade B-cell lymphoma
     Route: 065
     Dates: start: 20220221, end: 20220509
  15. BENDAMUSTINE [Suspect]
     Active Substance: BENDAMUSTINE
     Indication: High-grade B-cell lymphoma
     Route: 065
     Dates: start: 20220221, end: 20220509

REACTIONS (2)
  - Disease progression [Unknown]
  - Off label use [Unknown]
